FAERS Safety Report 15253931 (Version 8)
Quarter: 2020Q3

REPORT INFORMATION
  Report Type: Other
  Country: CA (occurrence: CA)
  Receive Date: 20180808
  Receipt Date: 20200917
  Transmission Date: 20201102
  Serious: Yes (Life-Threatening, Other)
  Sender: FDA-Public Use
  Company Number: CA-ASTELLAS-2018US034940

PATIENT
  Age: 45 Year
  Sex: Female

DRUGS (105)
  1. PROGRAF [Suspect]
     Active Substance: TACROLIMUS
     Route: 048
  2. PROGRAF [Suspect]
     Active Substance: TACROLIMUS
     Route: 048
  3. PROGRAF [Suspect]
     Active Substance: TACROLIMUS
     Dosage: UNK, UNKNOWN FREQ.
     Route: 048
  4. ANTITHYMOCYTE IMMUNOGLOBULIN (RABBIT) [Suspect]
     Active Substance: LAPINE T-LYMPHOCYTE IMMUNE GLOBULIN
     Route: 065
  5. ANTITHYMOCYTE IMMUNOGLOBULIN (RABBIT) [Suspect]
     Active Substance: LAPINE T-LYMPHOCYTE IMMUNE GLOBULIN
     Route: 058
  6. ENBREL [Suspect]
     Active Substance: ETANERCEPT
     Route: 058
  7. ENBREL [Suspect]
     Active Substance: ETANERCEPT
     Route: 065
  8. ENBREL [Suspect]
     Active Substance: ETANERCEPT
     Route: 048
  9. ENBREL [Suspect]
     Active Substance: ETANERCEPT
  10. ENBREL [Suspect]
     Active Substance: ETANERCEPT
     Route: 058
  11. MYCOPHENOLATE MOFETIL. [Suspect]
     Active Substance: MYCOPHENOLATE MOFETIL
     Dosage: UNK UNK, UNKNOWN FREQ.
     Route: 065
  12. ZENAPAX [Suspect]
     Active Substance: DACLIZUMAB
     Indication: PRODUCT USED FOR UNKNOWN INDICATION
     Route: 042
  13. ZENAPAX [Suspect]
     Active Substance: DACLIZUMAB
     Dosage: UNK UNK, UNKNOWN FREQ.
     Route: 065
  14. PROGRAF [Suspect]
     Active Substance: TACROLIMUS
     Route: 048
  15. PROGRAF [Suspect]
     Active Substance: TACROLIMUS
     Route: 048
  16. PROGRAF [Suspect]
     Active Substance: TACROLIMUS
     Route: 048
  17. ANTITHYMOCYTE IMMUNOGLOBULIN (RABBIT) [Suspect]
     Active Substance: LAPINE T-LYMPHOCYTE IMMUNE GLOBULIN
     Dosage: UNK, UNKNOWN FREQ.
     Route: 065
  18. ENBREL [Suspect]
     Active Substance: ETANERCEPT
     Route: 058
  19. MYCOPHENOLATE MOFETIL. [Suspect]
     Active Substance: MYCOPHENOLATE MOFETIL
     Route: 048
  20. NEORAL [Suspect]
     Active Substance: CYCLOSPORINE
     Indication: TRANSPLANT
     Dosage: UNK UNK, UNKNOWN FREQ.
     Route: 065
  21. CELLCEPT [Suspect]
     Active Substance: MYCOPHENOLATE MOFETIL\MYCOPHENOLATE MOFETIL HYDROCHLORIDE
     Route: 065
  22. ANTILYMPHOCYTE IMMUNOGLOBULIN [Suspect]
     Active Substance: THYMOCYTE IMMUNE GLOBULIN NOS
     Indication: TRANSPLANT REJECTION
     Route: 065
  23. ANTIHUMANLYMFOCYT?GLOBULIN [Suspect]
     Active Substance: THYMOCYTE IMMUNE GLOBULIN NOS
     Indication: PRODUCT USED FOR UNKNOWN INDICATION
     Route: 065
  24. ANTILYMPHOCYTE IMMUNOGLOBULIN [ANTILYMPHOCYTE IMMUNOGLOBULIN (HORSE)] [Suspect]
     Active Substance: EQUINE THYMOCYTE IMMUNE GLOBULIN
     Route: 065
  25. PROGRAF [Suspect]
     Active Substance: TACROLIMUS
     Dosage: UNK UNK, UNKNOWN FREQ.
     Route: 065
  26. PROGRAF [Suspect]
     Active Substance: TACROLIMUS
     Route: 065
  27. PROGRAF [Suspect]
     Active Substance: TACROLIMUS
     Route: 048
  28. PROGRAF [Suspect]
     Active Substance: TACROLIMUS
     Route: 048
  29. PROGRAF [Suspect]
     Active Substance: TACROLIMUS
     Route: 048
  30. TACROLIMUS. [Suspect]
     Active Substance: TACROLIMUS
     Indication: PRODUCT USED FOR UNKNOWN INDICATION
     Route: 048
  31. ENBREL [Suspect]
     Active Substance: ETANERCEPT
     Route: 048
  32. ENBREL [Suspect]
     Active Substance: ETANERCEPT
     Route: 058
  33. ENBREL [Suspect]
     Active Substance: ETANERCEPT
     Route: 058
  34. ENBREL [Suspect]
     Active Substance: ETANERCEPT
     Route: 058
  35. MYCOPHENOLATE MOFETIL. [Suspect]
     Active Substance: MYCOPHENOLATE MOFETIL
     Route: 048
  36. SULFASALAZINE. [Suspect]
     Active Substance: SULFASALAZINE
     Indication: RHEUMATOID ARTHRITIS
     Route: 065
  37. ANTIHUMANLYMFOCYT?GLOBULIN [Suspect]
     Active Substance: THYMOCYTE IMMUNE GLOBULIN NOS
     Indication: PRODUCT USED FOR UNKNOWN INDICATION
     Route: 065
  38. ANTILYMPHOCYTE IMMUNOGLOBULIN [ANTILYMPHOCYTE IMMUNOGLOBULIN (HORSE)] [Suspect]
     Active Substance: EQUINE THYMOCYTE IMMUNE GLOBULIN
     Indication: TRANSPLANT REJECTION
     Route: 065
  39. PROGRAF [Suspect]
     Active Substance: TACROLIMUS
     Route: 048
  40. PROGRAF [Suspect]
     Active Substance: TACROLIMUS
     Route: 048
  41. PROGRAF [Suspect]
     Active Substance: TACROLIMUS
     Route: 048
  42. PROGRAF [Suspect]
     Active Substance: TACROLIMUS
     Dosage: UNK UNK, UNKNOWN FREQ.
     Route: 048
  43. PROGRAF [Suspect]
     Active Substance: TACROLIMUS
     Route: 048
  44. PROGRAF [Suspect]
     Active Substance: TACROLIMUS
     Route: 048
  45. TACROLIMUS. [Suspect]
     Active Substance: TACROLIMUS
     Route: 048
  46. TACROLIMUS. [Suspect]
     Active Substance: TACROLIMUS
     Route: 048
  47. DACLIZUMAB [Suspect]
     Active Substance: DACLIZUMAB
     Dosage: 5 MG/ML, UNKNOWN FREQ.
     Route: 042
  48. MYCOPHENOLATE MOFETIL. [Suspect]
     Active Substance: MYCOPHENOLATE MOFETIL
     Route: 065
  49. REMICADE [Suspect]
     Active Substance: INFLIXIMAB
     Indication: PRODUCT USED FOR UNKNOWN INDICATION
     Dosage: UNK, UNKNOWN FREQ.
     Route: 042
  50. REMICADE [Suspect]
     Active Substance: INFLIXIMAB
     Dosage: UNK, UNKNOWN FREQ.
     Route: 042
  51. ANTILYMPHOCYTE IMMUNOGLOBULIN [ANTILYMPHOCYTE IMMUNOGLOBULIN (HORSE)] [Suspect]
     Active Substance: EQUINE THYMOCYTE IMMUNE GLOBULIN
     Route: 065
  52. GLICLAZIDE [Suspect]
     Active Substance: GLICLAZIDE
     Indication: PRODUCT USED FOR UNKNOWN INDICATION
     Dosage: UNK UNK, UNKNOWN FREQ.
     Route: 042
  53. PROGRAF [Suspect]
     Active Substance: TACROLIMUS
     Route: 048
  54. PROGRAF [Suspect]
     Active Substance: TACROLIMUS
     Route: 048
  55. PROGRAF [Suspect]
     Active Substance: TACROLIMUS
     Route: 048
  56. PROGRAF [Suspect]
     Active Substance: TACROLIMUS
     Route: 048
  57. TACROLIMUS. [Suspect]
     Active Substance: TACROLIMUS
     Route: 048
  58. ANTITHYMOCYTE IMMUNOGLOBULIN (RABBIT) [Suspect]
     Active Substance: LAPINE T-LYMPHOCYTE IMMUNE GLOBULIN
     Route: 065
  59. ANTITHYMOCYTE IMMUNOGLOBULIN (RABBIT) [Suspect]
     Active Substance: LAPINE T-LYMPHOCYTE IMMUNE GLOBULIN
     Route: 065
  60. ENBREL [Suspect]
     Active Substance: ETANERCEPT
     Route: 058
  61. ENBREL [Suspect]
     Active Substance: ETANERCEPT
     Route: 065
  62. CELLCEPT [Suspect]
     Active Substance: MYCOPHENOLATE MOFETIL\MYCOPHENOLATE MOFETIL HYDROCHLORIDE
     Indication: PRODUCT USED FOR UNKNOWN INDICATION
     Dosage: UNK, UNKNOWN FREQ.
     Route: 065
  63. ANTIHUMANLYMFOCYT?GLOBULIN [Suspect]
     Active Substance: THYMOCYTE IMMUNE GLOBULIN NOS
     Route: 065
  64. ANTIHUMANLYMFOCYT?GLOBULIN [Suspect]
     Active Substance: THYMOCYTE IMMUNE GLOBULIN NOS
     Route: 065
  65. TEMAZEPAM. [Suspect]
     Active Substance: TEMAZEPAM
     Indication: PRODUCT USED FOR UNKNOWN INDICATION
     Dosage: UNK UNK, UNKNOWN FREQ.
     Route: 042
  66. PROGRAF [Suspect]
     Active Substance: TACROLIMUS
     Route: 048
  67. PROGRAF [Suspect]
     Active Substance: TACROLIMUS
     Dosage: UNK UNK, UNKNOWN FREQ.
     Route: 048
  68. ANTITHYMOCYTE IMMUNOGLOBULIN (RABBIT) [Suspect]
     Active Substance: LAPINE T-LYMPHOCYTE IMMUNE GLOBULIN
     Indication: TRANSPLANT
     Route: 065
  69. ENBREL [Suspect]
     Active Substance: ETANERCEPT
     Indication: PRODUCT USED FOR UNKNOWN INDICATION
     Route: 065
  70. ENBREL [Suspect]
     Active Substance: ETANERCEPT
     Route: 065
  71. MYCOPHENOLATE MOFETIL. [Suspect]
     Active Substance: MYCOPHENOLATE MOFETIL
     Route: 048
  72. MYCOPHENOLATE MOFETIL. [Suspect]
     Active Substance: MYCOPHENOLATE MOFETIL
     Indication: TRANSPLANT
     Route: 048
  73. CELLCEPT [Suspect]
     Active Substance: MYCOPHENOLATE MOFETIL\MYCOPHENOLATE MOFETIL HYDROCHLORIDE
     Indication: PRODUCT USED FOR UNKNOWN INDICATION
     Route: 048
  74. PROGRAF [Suspect]
     Active Substance: TACROLIMUS
     Route: 048
  75. PROGRAF [Suspect]
     Active Substance: TACROLIMUS
     Route: 048
  76. PROGRAF [Suspect]
     Active Substance: TACROLIMUS
     Route: 048
  77. PROGRAF [Suspect]
     Active Substance: TACROLIMUS
     Route: 048
  78. PROGRAF [Suspect]
     Active Substance: TACROLIMUS
     Route: 048
  79. TACROLIMUS. [Suspect]
     Active Substance: TACROLIMUS
     Route: 048
  80. DACLIZUMAB [Suspect]
     Active Substance: DACLIZUMAB
     Indication: TRANSPLANT
     Route: 042
  81. ENBREL [Suspect]
     Active Substance: ETANERCEPT
     Route: 048
  82. ENBREL [Suspect]
     Active Substance: ETANERCEPT
     Route: 048
  83. RAPAMUNE [Suspect]
     Active Substance: SIROLIMUS
     Indication: TRANSPLANT
     Dosage: UNK UNK, UNKNOWN FREQ.
     Route: 065
  84. ZENAPAX [Suspect]
     Active Substance: DACLIZUMAB
     Dosage: UNK, UNKNOWN FREQ.
     Route: 042
  85. PROGRAF [Suspect]
     Active Substance: TACROLIMUS
     Indication: PRODUCT USED FOR UNKNOWN INDICATION
     Route: 048
  86. PROGRAF [Suspect]
     Active Substance: TACROLIMUS
     Route: 065
  87. PROGRAF [Suspect]
     Active Substance: TACROLIMUS
     Dosage: UNK UNK, UNKNOWN FREQ.
     Route: 048
  88. PROGRAF [Suspect]
     Active Substance: TACROLIMUS
     Route: 048
  89. PROGRAF [Suspect]
     Active Substance: TACROLIMUS
     Indication: TRANSPLANT
     Route: 048
  90. PROGRAF [Suspect]
     Active Substance: TACROLIMUS
     Route: 048
  91. PROGRAF [Suspect]
     Active Substance: TACROLIMUS
     Route: 048
  92. PROGRAF [Suspect]
     Active Substance: TACROLIMUS
     Route: 048
  93. TACROLIMUS. [Suspect]
     Active Substance: TACROLIMUS
     Route: 048
  94. TACROLIMUS. [Suspect]
     Active Substance: TACROLIMUS
     Route: 065
  95. DACLIZUMAB [Suspect]
     Active Substance: DACLIZUMAB
     Dosage: UNK UNK, UNKNOWN FREQ.
     Route: 042
  96. ENBREL [Suspect]
     Active Substance: ETANERCEPT
     Route: 058
  97. ENBREL [Suspect]
     Active Substance: ETANERCEPT
     Route: 058
  98. ENBREL [Suspect]
     Active Substance: ETANERCEPT
     Route: 065
  99. ENBREL [Suspect]
     Active Substance: ETANERCEPT
     Route: 065
  100. ENBREL [Suspect]
     Active Substance: ETANERCEPT
     Route: 048
  101. MYCOPHENOLATE MOFETIL. [Suspect]
     Active Substance: MYCOPHENOLATE MOFETIL
     Indication: TRANSPLANT
     Route: 048
  102. ZENAPAX [Suspect]
     Active Substance: DACLIZUMAB
     Dosage: UNK, UNKNOWN FREQ.
     Route: 042
  103. ANTILYMPHOCYTE IMMUNOGLOBULIN (HORSE) [Suspect]
     Active Substance: EQUINE THYMOCYTE IMMUNE GLOBULIN
     Indication: PRODUCT USED FOR UNKNOWN INDICATION
     Route: 065
  104. ANTIHUMANLYMFOCYT?GLOBULIN [Suspect]
     Active Substance: THYMOCYTE IMMUNE GLOBULIN NOS
     Route: 065
  105. ANTIHUMANLYMFOCYT?GLOBULIN [Suspect]
     Active Substance: THYMOCYTE IMMUNE GLOBULIN NOS
     Dosage: UNK, UNKNOWN FREQ.
     Route: 065

REACTIONS (16)
  - Pain [Not Recovered/Not Resolved]
  - Condition aggravated [Not Recovered/Not Resolved]
  - Alopecia [Not Recovered/Not Resolved]
  - Liver function test abnormal [Not Recovered/Not Resolved]
  - Ovarian cyst [Not Recovered/Not Resolved]
  - Incorrect route of product administration [Unknown]
  - Drug ineffective [Not Recovered/Not Resolved]
  - Rheumatoid arthritis [Not Recovered/Not Resolved]
  - Transplant rejection [Not Recovered/Not Resolved]
  - Transplant dysfunction [Not Recovered/Not Resolved]
  - Overdose [Unknown]
  - Product use issue [Unknown]
  - Acne [Not Recovered/Not Resolved]
  - Sleep disorder due to general medical condition, insomnia type [Not Recovered/Not Resolved]
  - Pneumonia [Not Recovered/Not Resolved]
  - Loss of personal independence in daily activities [Not Recovered/Not Resolved]
